FAERS Safety Report 5678490-6 (Version None)
Quarter: 2008Q1

REPORT INFORMATION
  Report Type: 
  Country: None (occurrence: None)
  Receive Date: 20080325
  Receipt Date: 20080320
  Transmission Date: 20080703
  Serious: Yes (Other)
  Sender: FDA-Public Use
  Company Number: DE-BRISTOL-MYERS SQUIBB COMPANY-14121743

PATIENT
  Age: 53 Year
  Sex: Female
  Weight: 70 kg

DRUGS (1)
  1. ABILIFY [Suspect]
     Indication: SCHIZOPHRENIA, PARANOID TYPE
     Dosage: 10MG:16MAY07 TO 10JUL07;15MG:10JUL07 TO 25JUL07; 20MG:25JUL07 TO 10JAN08;15MG FROM10JAN08
     Route: 048
     Dates: start: 20070516

REACTIONS (1)
  - RESORPTION BONE INCREASED [None]
